FAERS Safety Report 8598122 (Version 3)
Quarter: 2013Q4

REPORT INFORMATION
  Report Type: Spontaneous
  Country: US (occurrence: US)
  Receive Date: 20120605
  Receipt Date: 20131011
  Transmission Date: 20140711
  Serious: Yes (Other)
  Sender: FDA-Public Use
  Company Number: US-ASTRAZENECA-2012SE35873

PATIENT
  Age: 83 Year
  Sex: Female
  Weight: 59 kg

DRUGS (38)
  1. NEXIUM [Suspect]
     Indication: GASTROOESOPHAGEAL REFLUX DISEASE
     Dosage: ONE TAB DAILY
     Route: 048
     Dates: end: 2009
  2. NEXIUM [Suspect]
     Indication: DYSPEPSIA
     Dosage: ONE TAB DAILY
     Route: 048
     Dates: end: 2009
  3. NEXIUM [Suspect]
     Indication: GASTROOESOPHAGEAL REFLUX DISEASE
     Dosage: 1 TAB DAILY
     Route: 048
     Dates: start: 20080521, end: 2010
  4. NEXIUM [Suspect]
     Indication: DYSPEPSIA
     Dosage: 1 TAB DAILY
     Route: 048
     Dates: start: 20080521, end: 2010
  5. NEXIUM [Suspect]
     Indication: GASTROOESOPHAGEAL REFLUX DISEASE
     Route: 048
     Dates: start: 20080521
  6. NEXIUM [Suspect]
     Indication: DYSPEPSIA
     Route: 048
     Dates: start: 20080521
  7. PREVACID [Concomitant]
     Dates: start: 2012, end: 2013
  8. LEVOTHYROXINE [Concomitant]
     Dosage: BEFORE BREAKFAST
  9. CLOPIDOGREL/PLAVIX [Concomitant]
  10. AMIODARONE [Concomitant]
  11. FLUOXETINE/PROZAC [Concomitant]
     Dates: start: 20031003
  12. PRAVASTATIN SODIUM [Concomitant]
  13. FENTANYL [Concomitant]
  14. GABAPENTIN [Concomitant]
     Dates: start: 20080911
  15. ENALAPRIL MALEATE [Concomitant]
  16. OXYCODONE [Concomitant]
     Dosage: 40 MG TO 10 MG EVERY 12 HRS
  17. LIPITOR [Concomitant]
  18. LASIX [Concomitant]
  19. PERCOCET [Concomitant]
  20. PERCOCET [Concomitant]
     Dosage: 7.5/325 MG TAB
     Dates: start: 20030703
  21. DETROL [Concomitant]
     Dates: start: 20030805
  22. AMBIEN [Concomitant]
     Dates: start: 20030905
  23. PROTONIX [Concomitant]
     Dates: start: 20031003
  24. ATACAND [Concomitant]
     Dates: start: 20031003
  25. BEXTRA [Concomitant]
     Dates: start: 20040902
  26. MOBIC [Concomitant]
     Dates: start: 20041203
  27. DIDRONEL [Concomitant]
     Dates: start: 20041203
  28. METHOCARBAMOL [Concomitant]
     Dates: start: 20000721
  29. RANITIDINE [Concomitant]
     Dates: start: 20000803
  30. NABUMETONE [Concomitant]
     Dates: start: 20080611
  31. CELEBREX [Concomitant]
     Dates: start: 20001101
  32. DIOVAN [Concomitant]
     Dates: start: 20001204
  33. PRILOSEC [Concomitant]
     Dates: start: 20010208
  34. PREDNISONE [Concomitant]
     Dates: start: 20010321
  35. KAPIDEX [Concomitant]
     Dates: start: 20090911
  36. WARFARIN SODIUM [Concomitant]
     Dates: start: 20100401
  37. TRAZADONE [Concomitant]
     Dates: start: 20101121
  38. VESICARE [Concomitant]
     Dates: start: 20110629

REACTIONS (9)
  - Hip fracture [Unknown]
  - Osteoporosis [Unknown]
  - Multiple fractures [Unknown]
  - Wrist fracture [Unknown]
  - Hand fracture [Unknown]
  - Upper limb fracture [Unknown]
  - Cataract [Unknown]
  - Arthritis [Unknown]
  - Vitamin D deficiency [Unknown]
